FAERS Safety Report 5826202-5 (Version None)
Quarter: 2008Q3

REPORT INFORMATION
  Report Type: 
  Country: None (occurrence: None)
  Receive Date: 20080729
  Receipt Date: 20080718
  Transmission Date: 20090109
  Serious: Yes (Other)
  Sender: FDA-Public Use
  Company Number: JP-BAXTER-2008BH005550

PATIENT
  Sex: Male
  Weight: 80 kg

DRUGS (6)
  1. TISSUCOL/TISSEEL KIT [Suspect]
     Indication: SURGERY
     Route: 061
     Dates: start: 20030827, end: 20030827
  2. NEOPHAGEN C [Concomitant]
     Indication: HEPATIC FUNCTION ABNORMAL
     Dates: start: 20030902, end: 20030912
  3. AGIFTOL S [Concomitant]
     Indication: HEPATIC FUNCTION ABNORMAL
     Dates: start: 20030902, end: 20030912
  4. NEOPHAGEN C [Concomitant]
     Dates: start: 20040316, end: 20040318
  5. GLYCYRON [Concomitant]
     Indication: HEPATIC FUNCTION ABNORMAL
     Route: 048
     Dates: start: 20040316
  6. THIOLA [Concomitant]
     Indication: HEPATIC FUNCTION ABNORMAL
     Route: 048
     Dates: start: 20040316

REACTIONS (2)
  - HEPATITIS C [None]
  - MALAISE [None]
